FAERS Safety Report 4565466-5 (Version None)
Quarter: 2005Q1

REPORT INFORMATION
  Report Type: 
  Country: None (occurrence: None)
  Receive Date: 20050131
  Receipt Date: 20041102
  Transmission Date: 20050727
  Serious: Yes (Life-Threatening, Hospitalization)
  Sender: FDA-Public Use
  Company Number: PHBS2004AT14679

PATIENT
  Age: 68 Year
  Sex: Female

DRUGS (5)
  1. EUTHYROX [Concomitant]
     Dosage: 125 MG/DAY
  2. NEXIUM [Concomitant]
     Dosage: 40 MG/DAY
  3. CONCOR [Concomitant]
     Dosage: 5 MG/DAY
  4. THROMBO ASS [Concomitant]
     Dosage: 50 MG/DAY
  5. LAMISIL [Suspect]
     Route: 048
     Dates: start: 20040701

REACTIONS (11)
  - ALANINE AMINOTRANSFERASE INCREASED [None]
  - ANAEMIA [None]
  - ASPARTATE AMINOTRANSFERASE INCREASED [None]
  - BLOOD UREA INCREASED [None]
  - BONE MARROW DISORDER [None]
  - GAMMA-GLUTAMYLTRANSFERASE INCREASED [None]
  - HAEMATOCRIT DECREASED [None]
  - LEUKOPENIA [None]
  - MOUTH ULCERATION [None]
  - MYELODYSPLASTIC SYNDROME [None]
  - MYELOFIBROSIS [None]
